FAERS Safety Report 4578489-7 (Version None)
Quarter: 2005Q1

REPORT INFORMATION
  Report Type: 
  Country: None (occurrence: None)
  Receive Date: 20050209
  Receipt Date: 20050128
  Transmission Date: 20050727
  Serious: Yes (Hospitalization, Other)
  Sender: FDA-Public Use
  Company Number: 2005021958

PATIENT
  Age: 62 Year
  Sex: Female
  Weight: 77.1115 kg

DRUGS (8)
  1. LIPITOR [Suspect]
     Indication: BLOOD CHOLESTEROL INCREASED
     Dosage: 80 MG (80 MG 1 IN 1 D) ORAL
     Route: 048
  2. CELEBREX [Suspect]
     Dosage: (20 MG) ORAL
     Route: 048
  3. WARFARIN SODIUM [Suspect]
     Indication: THROMBOSIS
     Dosage: ORAL
     Route: 048
     Dates: end: 20031127
  4. ALL OTHER THERAPEUTIC PRODUCTS (ALL OTHER THERAPEUTIC PRODUCTS) [Suspect]
     Indication: RASH
     Dates: start: 20050107
  5. EZETIMIBE (EZETIMIBE) [Concomitant]
  6. LANSOPRAZOLE [Concomitant]
  7. ATENOLOL [Concomitant]
  8. ACETYLSALICYLIC ACID SRT [Concomitant]

REACTIONS (10)
  - CEREBRAL THROMBOSIS [None]
  - CHEST PAIN [None]
  - CORONARY ARTERY OCCLUSION [None]
  - DRUG HYPERSENSITIVITY [None]
  - EPISTAXIS [None]
  - FEELING ABNORMAL [None]
  - INFECTION PARASITIC [None]
  - NEOPLASM [None]
  - RASH PRURITIC [None]
  - THROMBOSIS [None]
